FAERS Safety Report 16198927 (Version 1)
Quarter: 2019Q2

REPORT INFORMATION
  Report Type: Spontaneous
  Country: FR (occurrence: FR)
  Receive Date: 20190415
  Receipt Date: 20190415
  Transmission Date: 20190711
  Serious: Yes (Other)
  Sender: FDA-Public Use
  Company Number: FR-MYLANLABS-2019M1034874

PATIENT
  Age: 72 Year
  Sex: Male
  Weight: 88 kg

DRUGS (4)
  1. HEPARINE SODIQUE [Suspect]
     Active Substance: HEPARIN SODIUM
     Indication: THROMBOSIS PROPHYLAXIS
     Dosage: 16000 INTERNATIONAL UNIT, QD
     Route: 042
     Dates: start: 20180611, end: 20180615
  2. XYLOCARD [Suspect]
     Active Substance: LIDOCAINE HYDROCHLORIDE
     Indication: VENTRICULAR ARRHYTHMIA
     Dosage: 1 MILLIGRAM, QMINUTE
     Route: 042
     Dates: start: 20180611, end: 20180616
  3. NORADRENALINE MYLAN [Suspect]
     Active Substance: NOREPINEPHRINE\NOREPINEPHRINE BITARTRATE
     Indication: CARDIOGENIC SHOCK
     Dosage: 0.5 MICROGRAM/KILOGRAM, QMINUTE
     Route: 042
     Dates: start: 20180611, end: 20180614
  4. MILRINONE MEDAC [Suspect]
     Active Substance: MILRINONE
     Indication: CARDIAC FAILURE
     Dosage: 45 MICROGRAM, QMINUTE
     Route: 042
     Dates: start: 20180611, end: 20180616

REACTIONS (1)
  - Psychotic disorder [Recovered/Resolved]

NARRATIVE: CASE EVENT DATE: 20180612
